FAERS Safety Report 4721774-6 (Version None)
Quarter: 2005Q3

REPORT INFORMATION
  Report Type: 
  Country: None (occurrence: None)
  Receive Date: 20050722
  Receipt Date: 20050629
  Transmission Date: 20060218
  Serious: Yes (Hospitalization, Other)
  Sender: FDA-Public Use
  Company Number: 200516121GDDC

PATIENT
  Age: 69 Year
  Sex: Female

DRUGS (5)
  1. ARAVA [Suspect]
     Indication: RHEUMATOID ARTHRITIS
     Dosage: DOSE: UNK
     Route: 048
     Dates: start: 20000411
  2. CELEBREX [Concomitant]
     Dosage: DOSE: UNK
  3. PREDNISOLONE [Concomitant]
     Dosage: DOSE: UNK
  4. AROPAX [Concomitant]
     Dosage: DOSE: UNK
  5. DIAMICRON [Concomitant]
     Dosage: DOSE: UNK

REACTIONS (2)
  - ATRIAL FIBRILLATION [None]
  - HEPATIC ENZYME INCREASED [None]
